FAERS Safety Report 14715026 (Version 2)
Quarter: 2018Q2

REPORT INFORMATION
  Report Type: Report from Study
  Country: IE (occurrence: IE)
  Receive Date: 20180404
  Receipt Date: 20180524
  Transmission Date: 20180711
  Serious: Yes (Hospitalization)
  Sender: FDA-Public Use
  Company Number: IE-AMGEN-IRLSL2018043668

PATIENT
  Sex: Female

DRUGS (16)
  1. FASTUM [Concomitant]
     Active Substance: KETOPROFEN
     Dosage: (2.5 %)
  2. ATORVASTATIN [Concomitant]
     Active Substance: ATORVASTATIN
     Dosage: 20 MG, QD
  3. LOSEC [Concomitant]
     Active Substance: OMEPRAZOLE
     Dosage: 20 MG, BID
  4. COLPERMIN [Concomitant]
     Active Substance: PEPPERMINT OIL
     Dosage: UNK UNK, TID
  5. DOVOBET [Concomitant]
     Active Substance: BETAMETHASONE\CALCIPOTRIENE
     Dosage: 50 MUG/G, 0.5 MG/G, UNK
  6. PARALIEF [Concomitant]
     Dosage: 500 MG, AS NECESSARY
  7. CALVEPEN [Concomitant]
     Dosage: 333 MG, BID
  8. ZYDOL [Concomitant]
     Active Substance: TRAMADOL HYDROCHLORIDE
     Dosage: 100 MG, BID
  9. AVAMYS [Concomitant]
     Active Substance: FLUTICASONE FUROATE
     Dosage: 27.5 MUG, UNK
  10. NEURONTIN [Concomitant]
     Active Substance: GABAPENTIN
     Dosage: 600 MG, TID
  11. SPASMONAL [Concomitant]
     Dosage: 60 MG, TID
  12. OLANZAPINE. [Concomitant]
     Active Substance: OLANZAPINE
     Dosage: 10 MG, QD
  13. PROLIA [Suspect]
     Active Substance: DENOSUMAB
     Indication: OSTEOPOROSIS
     Dosage: 60 MG, Q6MO
     Route: 058
     Dates: start: 20170208
  14. FROVEX [Concomitant]
     Dosage: 2.5 MG, UNK
  15. PROZAC [Concomitant]
     Active Substance: FLUOXETINE HYDROCHLORIDE
     Dosage: 20 MG, QD
  16. DESUNIN [Concomitant]
     Active Substance: CHOLECALCIFEROL
     Dosage: 800 IU, QD

REACTIONS (2)
  - Migraine [Unknown]
  - Cholelithiasis [Unknown]
